FAERS Safety Report 14720883 (Version 2)
Quarter: 2018Q2

REPORT INFORMATION
  Report Type: Spontaneous
  Country: US (occurrence: US)
  Receive Date: 20180405
  Receipt Date: 20180517
  Transmission Date: 20180711
  Serious: Yes (Hospitalization, Other)
  Sender: FDA-Public Use
  Company Number: US-PFIZER INC-2018132652

PATIENT
  Age: 52 Year
  Sex: Male

DRUGS (5)
  1. GENOTROPIN MQ [Suspect]
     Active Substance: SOMATROPIN
     Indication: GROWTH HORMONE DEFICIENCY
     Dosage: 0.4 MG, 2X/DAY
     Route: 058
     Dates: start: 2004
  2. VALACYCLOVIR [Concomitant]
     Active Substance: VALACYCLOVIR HYDROCHLORIDE
     Indication: VIRAL LOAD
     Dosage: 500 MG, 2X/DAY
  3. HYDROCORTISONE. [Concomitant]
     Active Substance: HYDROCORTISONE
     Indication: ADRENAL INSUFFICIENCY
     Dosage: 5 MG, UNK (5MG CAPSULE ONE OR TWO, BUT UP TO FOUR PER DAY)
  4. GENOTROPIN MQ [Suspect]
     Active Substance: SOMATROPIN
     Dosage: UNK
  5. PORCINE THYROID [Concomitant]
     Active Substance: THYROID, PORCINE
     Indication: HYPOTHYROIDISM
     Dosage: 125 MG, DAILY

REACTIONS (11)
  - Wound [Unknown]
  - Dizziness [Recovering/Resolving]
  - Intentional product misuse [Unknown]
  - Drug dose omission [Not Recovered/Not Resolved]
  - Feeling abnormal [Not Recovered/Not Resolved]
  - Loss of consciousness [Unknown]
  - Weight fluctuation [Unknown]
  - Tremor [Unknown]
  - Hangover [Unknown]
  - Nausea [Unknown]
  - Withdrawal syndrome [Unknown]

NARRATIVE: CASE EVENT DATE: 201803
